FAERS Safety Report 19301036 (Version 1)
Quarter: 2021Q2

REPORT INFORMATION
  Report Type: Spontaneous
  Country: US (occurrence: US)
  Receive Date: 20210525
  Receipt Date: 20210525
  Transmission Date: 20210717
  Serious: Yes (Life-Threatening, Hospitalization)
  Sender: FDA-Public Use
  Company Number: US-MYLANLABS-2021M1029295

PATIENT
  Age: 66 Year
  Sex: Female

DRUGS (4)
  1. DESMOPRESSIN [Suspect]
     Active Substance: DESMOPRESSIN
     Indication: PREMEDICATION
     Dosage: INTRANASAL DESMOPRESSIN
     Route: 045
  2. VONICOG ALFA [Suspect]
     Active Substance: VONICOG ALFA
     Indication: PREMEDICATION
     Dosage: UNK
     Route: 042
  3. VONICOG ALFA [Suspect]
     Active Substance: VONICOG ALFA
     Indication: VON WILLEBRAND^S DISEASE
  4. DESMOPRESSIN [Suspect]
     Active Substance: DESMOPRESSIN
     Indication: VON WILLEBRAND^S DISEASE

REACTIONS (4)
  - Vascular stent thrombosis [Recovered/Resolved]
  - Vascular stent occlusion [Recovered/Resolved]
  - Hypotension [Recovered/Resolved]
  - Chest pain [Recovered/Resolved]
